FAERS Safety Report 17556423 (Version 1)
Quarter: 2020Q1

REPORT INFORMATION
  Report Type: Report from Study
  Country: ES (occurrence: ES)
  Receive Date: 20200318
  Receipt Date: 20200318
  Transmission Date: 20200409
  Serious: Yes (Hospitalization)
  Sender: FDA-Public Use
  Company Number: ES-PFIZER INC-2020112041

PATIENT
  Age: 63 Year
  Sex: Male

DRUGS (5)
  1. BISOPROLOL FUMARATE. [Concomitant]
     Active Substance: BISOPROLOL FUMARATE
     Indication: MYOCARDIAL ISCHAEMIA
     Dosage: 10 MG, 1X/DAY
     Route: 048
     Dates: start: 201811
  2. AAS [Concomitant]
     Active Substance: ASPIRIN
     Indication: MYOCARDIAL ISCHAEMIA
     Dosage: 100 MG, 1X/DAY
     Route: 048
     Dates: start: 201707
  3. CLINDAMYCIN HCL [Suspect]
     Active Substance: CLINDAMYCIN HYDROCHLORIDE
     Indication: DENTAL DISORDER PROPHYLAXIS
     Dosage: UNK
     Route: 048
     Dates: start: 20190930, end: 20190930
  4. ATORVASTATIN [Concomitant]
     Active Substance: ATORVASTATIN
     Indication: DYSLIPIDAEMIA
     Dosage: 40 MG, 1X/DAY
     Route: 048
     Dates: start: 201707
  5. METFORMINE [METFORMIN] [Concomitant]
     Active Substance: METFORMIN HYDROCHLORIDE
     Indication: DIABETES MELLITUS
     Dosage: 2.55 G, 1X/DAY
     Route: 048
     Dates: start: 201604, end: 20191004

REACTIONS (3)
  - Rash erythematous [Recovered/Resolved]
  - Musculoskeletal pain [Recovered/Resolved]
  - Pyrexia [Recovered/Resolved]

NARRATIVE: CASE EVENT DATE: 20190930
